FAERS Safety Report 8395477 (Version 2)
Quarter: 2012Q4

REPORT INFORMATION
  Report Type: Spontaneous
  Country: GB (occurrence: None)
  Receive Date: 20120130
  Receipt Date: 20120823
  Transmission Date: 20130627
  Serious: Yes (Hospitalization)
  Sender: FDA-Public Use
  Company Number: 2012AP000169

PATIENT
  Age: 71 Year

DRUGS (6)
  1. LEFLUNOMIDE [Suspect]
     Dosage: 20 MG;QD PO
     Route: 048
  2. CHANTIX [Suspect]
     Dates: start: 20120106
  3. DIGOXIN [Concomitant]
  4. FERROUS SULFATE [Concomitant]
  5. PREDNISOLONE [Concomitant]
  6. WARFARIN SODIUM [Concomitant]

REACTIONS (4)
  - HEPATOTOXICITY [None]
  - INTERNATIONAL NORMALISED RATIO INCREASED [None]
  - JAUNDICE [None]
  - ALCOHOL USE [None]
